FAERS Safety Report 8581157 (Version 3)
Quarter: 2013Q2

REPORT INFORMATION
  Report Type: Spontaneous
  Country: US (occurrence: US)
  Receive Date: 20120525
  Receipt Date: 20130603
  Transmission Date: 20140414
  Serious: Yes (Hospitalization, Other)
  Sender: FDA-Public Use
  Company Number: US-TEVA-339616USA

PATIENT
  Sex: Male

DRUGS (3)
  1. COPAXONE [Suspect]
     Indication: MULTIPLE SCLEROSIS
  2. AVONEX [Suspect]
  3. TYSABRI [Suspect]

REACTIONS (11)
  - Anaphylactic shock [Recovered/Resolved]
  - Throat tightness [Recovered/Resolved]
  - Multiple sclerosis relapse [Unknown]
  - Colostomy [Unknown]
  - Progressive multifocal leukoencephalopathy [Unknown]
  - Secondary progressive multiple sclerosis [Unknown]
  - Somnolence [Unknown]
  - Speech disorder [Recovered/Resolved]
  - Therapeutic response unexpected [Unknown]
  - Malaise [Unknown]
  - Hypoaesthesia [Unknown]
